FAERS Safety Report 8341024-1 (Version None)
Quarter: 2012Q2

REPORT INFORMATION
  Report Type: 
  Country: None (occurrence: None)
  Receive Date: 20120507
  Receipt Date: 20120427
  Transmission Date: 20120825
  Serious: Yes (Other)
  Sender: FDA-Public Use
  Company Number: BR-ASTRAZENECA-2012SE27649

PATIENT
  Age: 69 Year
  Sex: Male
  Weight: 54 kg

DRUGS (7)
  1. NEXIUM [Suspect]
     Route: 048
     Dates: start: 20120301
  2. NEXIUM [Suspect]
     Route: 048
     Dates: start: 20120301
  3. BUDESONIDE [Suspect]
     Indication: NASAL POLYPS
     Route: 045
     Dates: start: 20110101
  4. LOSARTAN POTASSIUM [Concomitant]
     Indication: HYPERTENSION
     Route: 048
     Dates: start: 20020101
  5. NEXIUM [Suspect]
     Indication: HIATUS HERNIA
     Route: 048
     Dates: start: 20100801, end: 20120301
  6. ZESTRIL [Suspect]
     Indication: HYPERTENSION
     Route: 048
     Dates: start: 19980101, end: 20020101
  7. NEXIUM [Suspect]
     Indication: GASTRITIS
     Route: 048
     Dates: start: 20100801, end: 20120301

REACTIONS (5)
  - SERUM FERRITIN INCREASED [None]
  - BLOOD CHOLESTEROL INCREASED [None]
  - DRY THROAT [None]
  - DYSPEPSIA [None]
  - NASAL POLYPS [None]
